FAERS Safety Report 25908432 (Version 3)
Quarter: 2025Q4

REPORT INFORMATION
  Report Type: Report from Study
  Country: JP (occurrence: JP)
  Receive Date: 20251010
  Receipt Date: 20251222
  Transmission Date: 20260118
  Serious: Yes (Hospitalization)
  Sender: EISAI
  Company Number: JP-Eisai-202506618_LEQ_P_1

PATIENT
  Age: 81 Year
  Sex: Male
  Weight: 75 kg

DRUGS (22)
  1. LEQEMBI [Suspect]
     Active Substance: LECANEMAB-IRMB
     Indication: Cognitive disorder
     Dosage: DRUG ADMINISTERED AT VARIOUS FREQUENCIES
     Route: 041
     Dates: start: 20241221, end: 20250607
  2. LEQEMBI [Suspect]
     Active Substance: LECANEMAB-IRMB
     Dosage: DOSE AND FREQUENCY UNKNOWN
     Route: 041
  3. ARICEPT [Concomitant]
     Active Substance: DONEPEZIL HYDROCHLORIDE
     Indication: Cognitive disorder
     Dosage: DOSE UNKNOWN
     Route: 048
  4. DAYVIGO [Concomitant]
     Active Substance: LEMBOREXANT
     Dosage: DOSE UNKNOWN
     Route: 048
  5. LIMAPROST [Concomitant]
     Active Substance: LIMAPROST
     Dosage: DOSE UNKNOWN
     Route: 048
  6. TRANEXAMIC ACID [Concomitant]
     Active Substance: TRANEXAMIC ACID
     Dosage: DOSE UNKNOWN
     Route: 048
  7. CALONAL [Concomitant]
     Active Substance: ACETAMINOPHEN
     Dosage: DOSE UNKNOWN
     Route: 048
  8. CYANOCOBALAMIN\PYRIDOXINE HYDROCHLORIDE\THIAMINE [Concomitant]
     Active Substance: CYANOCOBALAMIN\PYRIDOXINE HYDROCHLORIDE\THIAMINE
     Dosage: DOSE UNKNOWN
     Route: 048
  9. OLMESARTAN MEDOXOMIL [Concomitant]
     Active Substance: OLMESARTAN MEDOXOMIL
     Dosage: DOSE UNKNOWN
     Route: 048
  10. FEBUXOSTAT [Concomitant]
     Active Substance: FEBUXOSTAT
     Dosage: DOSE UNKNOWN
     Route: 048
  11. SODIUM FERROUS CITRATE [Concomitant]
     Active Substance: SODIUM FERROUS CITRATE
     Dosage: DOSE UNKNOWN
     Route: 048
  12. ESOMEPRAZOLE [Concomitant]
     Active Substance: ESOMEPRAZOLE
     Dosage: DOSE UNKNOWN
     Route: 048
  13. MAGNESIUM OXIDE [Concomitant]
     Active Substance: MAGNESIUM OXIDE
     Dosage: DOSE UNKNOWN
     Route: 048
  14. BICALUTAMIDE [Concomitant]
     Active Substance: BICALUTAMIDE
     Dosage: DOSE UNKNOWN
     Route: 048
  15. TAMSULOSIN HYDROCHLORIDE [Concomitant]
     Active Substance: TAMSULOSIN HYDROCHLORIDE
     Dosage: DOSE UNKNOWN
     Route: 048
  16. OMEGA-3-ACID ETHYL ESTERS [Concomitant]
     Active Substance: OMEGA-3-ACID ETHYL ESTERS
     Dosage: DOSE UNKNOWN
     Route: 048
  17. TRIAZOLAM [Concomitant]
     Active Substance: TRIAZOLAM
     Dosage: DOSE UNKNOWN
     Route: 048
  18. SENNOSIDES [Concomitant]
     Active Substance: SENNOSIDES
     Dosage: DOSE UNKNOWN
     Route: 048
  19. TIARAMIDE [Concomitant]
     Active Substance: TIARAMIDE
     Dosage: DOSE UNKNOWN
     Route: 048
  20. CARBOCYSTEINE [Concomitant]
     Active Substance: CARBOCYSTEINE
     Dosage: DOSE UNKNOWN
     Route: 048
  21. DEXTROMETHORPHAN HYDROBROMIDE [Concomitant]
     Active Substance: DEXTROMETHORPHAN HYDROBROMIDE
     Dosage: DOSE UNKNOWN
     Route: 048
  22. MEDICON [Concomitant]
     Dosage: DOSE UNKNOWN
     Route: 048

REACTIONS (2)
  - Acute kidney injury [Unknown]
  - Pneumonia [Unknown]

NARRATIVE: CASE EVENT DATE: 20250101
